FAERS Safety Report 6361642-X (Version None)
Quarter: 2009Q3

REPORT INFORMATION
  Report Type: 
  Country: None (occurrence: None)
  Receive Date: 20090918
  Receipt Date: 20090908
  Transmission Date: 20100115
  Serious: Yes (Other)
  Sender: FDA-Public Use
  Company Number: US-PFIZER INC-2009270257

PATIENT
  Weight: 75.283 kg

DRUGS (1)
  1. ZOLOFT [Suspect]
     Indication: DEPRESSION
     Dosage: 25 MG DAILY
     Route: 048
     Dates: start: 20090101

REACTIONS (2)
  - ACCOMMODATION DISORDER [None]
  - EYE DISORDER [None]
